FAERS Safety Report 8956505 (Version 1)
Quarter: 2012Q4

REPORT INFORMATION
  Report Type: 
  Country: JP (occurrence: JP)
  Receive Date: 20121210
  Receipt Date: 20121210
  Transmission Date: 20130627
  Serious: Yes (Hospitalization)
  Sender: FDA-Public Use
  Company Number: JP-PFIZER INC-2012307916

PATIENT
  Age: 80 Year
  Sex: Female

DRUGS (1)
  1. AMLODIN [Suspect]
     Dosage: 10 mg, UNK
     Route: 048
     Dates: end: 20120904

REACTIONS (2)
  - Parotitis [Unknown]
  - Gingival hyperplasia [Recovering/Resolving]
